FAERS Safety Report 17557659 (Version 4)
Quarter: 2021Q1

REPORT INFORMATION
  Report Type: Spontaneous
  Country: JP (occurrence: JP)
  Receive Date: 20200318
  Receipt Date: 20210312
  Transmission Date: 20210419
  Serious: Yes (Other)
  Sender: FDA-Public Use
  Company Number: JP-EISAI MEDICAL RESEARCH-E2020-07193-SPO-JP

PATIENT
  Age: 79 Year
  Sex: Male
  Weight: 48.9 kg

DRUGS (7)
  1. MUCOSTA [Suspect]
     Active Substance: REBAMIPIDE
     Indication: GASTRITIS PROPHYLAXIS
     Route: 048
     Dates: start: 20090627
  2. NEUROTROPIN [Suspect]
     Active Substance: NEUROTROPIN
     Indication: POST HERPETIC NEURALGIA
     Route: 042
     Dates: start: 20100430
  3. METHYCOBAL [Suspect]
     Active Substance: METHYLCOBALAMIN
     Indication: HYPOAESTHESIA
     Route: 065
     Dates: start: 20090627
  4. ARICEPT [Suspect]
     Active Substance: DONEPEZIL HYDROCHLORIDE
     Indication: SENILE DEMENTIA
     Route: 048
     Dates: start: 20090219
  5. LYRICA [Suspect]
     Active Substance: PREGABALIN
     Indication: POST HERPETIC NEURALGIA
     Route: 048
     Dates: start: 20100714, end: 20100720
  6. LYRICA [Suspect]
     Active Substance: PREGABALIN
     Indication: HERPES ZOSTER
  7. LOXONIN [Suspect]
     Active Substance: LOXOPROFEN SODIUM
     Indication: POST HERPETIC NEURALGIA
     Route: 048
     Dates: start: 20090627

REACTIONS (2)
  - Pain [Recovering/Resolving]
  - Epilepsy [Recovering/Resolving]

NARRATIVE: CASE EVENT DATE: 20100715
